FAERS Safety Report 4915267-0 (Version None)
Quarter: 2006Q1

REPORT INFORMATION
  Report Type: 
  Country: None (occurrence: None)
  Receive Date: 20060217
  Receipt Date: 20060202
  Transmission Date: 20060701
  Serious: Yes (Other)
  Sender: FDA-Public Use
  Company Number: PHNU2006DE00761

PATIENT
  Age: 38 Year
  Sex: Female
  Weight: 72 kg

DRUGS (1)
  1. GLEEVEC [Suspect]
     Dosage: 400 MG, QD
     Route: 048

REACTIONS (5)
  - DYSARTHRIA [None]
  - FACIAL PARESIS [None]
  - HEMIPLEGIA [None]
  - ISCHAEMIC CEREBRAL INFARCTION [None]
  - RAYNAUD'S PHENOMENON [None]
